FAERS Safety Report 4451636-3 (Version None)
Quarter: 2004Q3

REPORT INFORMATION
  Report Type: 
  Country: None (occurrence: None)
  Receive Date: 20040915
  Receipt Date: 20040906
  Transmission Date: 20050211
  Serious: Yes (Life-Threatening)
  Sender: FDA-Public Use
  Company Number: 2004229777FR

PATIENT
  Age: 36 Year
  Sex: Female
  Weight: 51 kg

DRUGS (5)
  1. SULFASALAZINE [Suspect]
     Dosage: 3 G/DAY, ORAL
     Route: 048
     Dates: start: 20030515
  2. DELTASONE [Suspect]
     Dosage: 8 MG/DAY, ORAL
     Route: 048
  3. AZATHIOPRINE [Suspect]
     Dosage: 2 DF/DAY, ORAL
     Route: 048
     Dates: start: 20001215, end: 20030915
  4. PROPRANOLOL [Suspect]
     Dosage: 20 MG/DAY, ORAL
     Route: 048
  5. RANITIDINE HCL [Suspect]
     Dosage: 300 MG/DAY, ORAL
     Route: 048
     Dates: end: 20040612

REACTIONS (5)
  - ACUTE MYELOID LEUKAEMIA [None]
  - ARTHRALGIA [None]
  - ASTHENIA [None]
  - HAEMOGLOBIN DECREASED [None]
  - MACROCYTOSIS [None]
